FAERS Safety Report 4303948-1 (Version None)
Quarter: 2004Q1

REPORT INFORMATION
  Report Type: 
  Country: None (occurrence: None)
  Receive Date: 20040225
  Receipt Date: 20040107
  Transmission Date: 20041129
  Serious: Yes (Other)
  Sender: FDA-Public Use
  Company Number: US-ROCHE-355417

PATIENT
  Age: 66 Year
  Sex: Female
  Weight: 107.5 kg

DRUGS (6)
  1. SORIATANE [Suspect]
     Indication: PSORIASIS
     Route: 048
  2. LIPITOR [Concomitant]
     Route: 048
  3. DIOVAN [Concomitant]
     Route: 048
  4. MOBIC [Concomitant]
     Route: 048
  5. ZOMIG [Concomitant]
     Route: 048
  6. PREMARIN [Concomitant]

REACTIONS (1)
  - DEEP VEIN THROMBOSIS [None]
